FAERS Safety Report 18904955 (Version 1)
Quarter: 2021Q1

REPORT INFORMATION
  Report Type: Spontaneous
  Country: US (occurrence: US)
  Receive Date: 20210217
  Receipt Date: 20210217
  Transmission Date: 20210420
  Serious: Yes (Other)
  Sender: FDA-Public Use
  Company Number: US-AMERICAN REGENT INC-2021000398

PATIENT
  Age: 27 Year
  Sex: Female

DRUGS (1)
  1. VENOFER [Suspect]
     Active Substance: IRON SUCROSE
     Indication: PRODUCT USED FOR UNKNOWN INDICATION
     Dosage: UNK UNKNOWN, SINGLE
     Route: 042
     Dates: start: 20210212, end: 20210212

REACTIONS (4)
  - Purpura [Recovered/Resolved]
  - Rash macular [Recovered/Resolved]
  - Maternal exposure during pregnancy [Unknown]
  - Burning sensation [Unknown]

NARRATIVE: CASE EVENT DATE: 20210212
